FAERS Safety Report 11159316 (Version 2)
Quarter: 2016Q3

REPORT INFORMATION
  Report Type: Report from Study
  Country: JP (occurrence: JP)
  Receive Date: 20150603
  Receipt Date: 20160909
  Transmission Date: 20161109
  Serious: Yes (Death, Hospitalization, Other)
  Sender: FDA-Public Use
  Company Number: JP-ALEXION-A201501938

PATIENT
  Age: 5 Year
  Sex: Female
  Weight: 13 kg

DRUGS (27)
  1. CEFTAZIDIME. [Concomitant]
     Active Substance: CEFTAZIDIME
     Indication: PRODUCT USED FOR UNKNOWN INDICATION
     Dosage: 1.5 G, TID
     Route: 065
     Dates: start: 20150306, end: 20150317
  2. NOVORAPID [Concomitant]
     Active Substance: INSULIN ASPART
     Indication: DIABETES MELLITUS
     Dosage: 4.5 UNIT, 5TH PER DAY
     Route: 058
     Dates: start: 20121010, end: 20141110
  3. RIBALL [Concomitant]
     Active Substance: ALLOPURINOL
     Indication: HYPERLIPIDAEMIA
     Dosage: 0.1 G, TID
     Route: 048
     Dates: start: 20150225, end: 20150518
  4. ALINAMIN                           /00257802/ [Concomitant]
     Indication: VITAMIN B1 DEFICIENCY
     Dosage: 100 MG, BID
     Route: 048
     Dates: start: 20150309, end: 20150421
  5. MICARDIS [Concomitant]
     Active Substance: TELMISARTAN
     Indication: HAEMOLYTIC URAEMIC SYNDROME
     Dosage: 8 MG, QD
     Route: 048
     Dates: start: 20140401, end: 20150224
  6. PHENOBAL                           /00023201/ [Concomitant]
     Active Substance: PHENOBARBITAL
     Indication: HAEMOLYTIC URAEMIC SYNDROME
     Dosage: 35 MG, BID
     Route: 048
     Dates: start: 20150101, end: 20150518
  7. BIOLACTIS [Concomitant]
     Active Substance: LACTOBACILLUS CASEI
     Dosage: 2 G, TID
     Route: 048
     Dates: start: 20150224, end: 20150518
  8. ALFAROL [Concomitant]
     Active Substance: ALFACALCIDOL
     Indication: RENAL FAILURE
     Dosage: 0.25 ?G, QD
     Route: 048
     Dates: start: 20130827, end: 20150421
  9. PROMAC                             /00024401/ [Concomitant]
     Active Substance: NITROFURANTOIN
     Indication: GASTRITIS PROPHYLAXIS
     Dosage: 0.5 G, QD
     Route: 048
     Dates: start: 20120229, end: 20150414
  10. PREDONINE [Concomitant]
     Active Substance: PREDNISOLONE\PREDNISOLONE ACETATE\PREDNISOLONE SODIUM SUCCINATE
     Indication: HAEMOLYTIC URAEMIC SYNDROME
     Dosage: 10 MG, QD
     Route: 048
     Dates: start: 20140405, end: 20150518
  11. VENILON [Concomitant]
     Active Substance: HUMAN IMMUNOGLOBULIN G
     Indication: IMMUNODEFICIENCY
     Dosage: 5 G, QMONTH
     Route: 041
     Dates: start: 20140501, end: 20150518
  12. SINGULAIR [Concomitant]
     Active Substance: MONTELUKAST SODIUM
     Indication: ASTHMA PROPHYLAXIS
     Dosage: 4 MG, QD
     Route: 048
     Dates: start: 20120726, end: 20150518
  13. SOLIRIS [Suspect]
     Active Substance: ECULIZUMAB
     Indication: HAEMOLYTIC URAEMIC SYNDROME
     Dosage: 600 MG, SINGLE
     Route: 042
     Dates: start: 20150319, end: 20150319
  14. SEPAMIT-R [Concomitant]
     Active Substance: NIFEDIPINE
     Indication: HAEMOLYTIC URAEMIC SYNDROME
     Dosage: 6 MG, TID
     Route: 048
     Dates: start: 20140401, end: 20150224
  15. MICARDIS [Concomitant]
     Active Substance: TELMISARTAN
     Indication: HYPERTENSION
     Dosage: 10 MG, QD
     Route: 048
     Dates: start: 20150225, end: 20150518
  16. URALYT U                           /01675401/ [Concomitant]
     Active Substance: POTASSIUM CITRATE\TRISODIUM CITRATE DIHYDRATE
     Indication: RENAL FAILURE
     Dosage: 2 G, BID
     Route: 048
     Dates: start: 20140401, end: 20150223
  17. NEORAL [Concomitant]
     Active Substance: CYCLOSPORINE
     Indication: IMMUNODEFICIENCY
     Dosage: 20 MG, BID
     Route: 048
     Dates: start: 20130827, end: 20150411
  18. PREDONINE [Concomitant]
     Active Substance: PREDNISOLONE\PREDNISOLONE ACETATE\PREDNISOLONE SODIUM SUCCINATE
     Indication: IMMUNODEFICIENCY
  19. TRESIBA [Concomitant]
     Active Substance: INSULIN DEGLUDEC
     Indication: DIABETES MELLITUS
     Dosage: 3 IU, QD
     Route: 058
     Dates: start: 20141111
  20. CARDENALIN [Concomitant]
     Active Substance: DOXAZOSIN MESYLATE
     Indication: HAEMOLYTIC URAEMIC SYNDROME
     Dosage: 0.3 MG, QD
     Route: 048
     Dates: start: 20141229, end: 20150518
  21. L CARTIN FF [Concomitant]
     Active Substance: LEVOCARNITINE
     Indication: PROPHYLAXIS
     Dosage: 100 MG, BID
     Route: 048
     Dates: start: 20150317, end: 20150518
  22. BIOLACTIS [Concomitant]
     Active Substance: LACTOBACILLUS CASEI
     Indication: PROPHYLAXIS
     Dosage: 1 G, QD
     Route: 048
     Dates: start: 20130827, end: 20150223
  23. CLAFORAN [Concomitant]
     Active Substance: CEFOTAXIME SODIUM
     Indication: PRODUCT USED FOR UNKNOWN INDICATION
     Dosage: 1000 MG, BID
     Route: 065
     Dates: start: 20150325, end: 20150330
  24. NEORAL [Concomitant]
     Active Substance: CYCLOSPORINE
     Dosage: 60 MG, BID
     Route: 048
     Dates: start: 20150412, end: 20150518
  25. SEPAMIT-R [Concomitant]
     Active Substance: NIFEDIPINE
     Indication: HYPERTENSION
     Dosage: 0.9 G, TID
     Route: 048
     Dates: start: 20150225, end: 20150518
  26. URALYT U                           /01675401/ [Concomitant]
     Active Substance: POTASSIUM CITRATE\TRISODIUM CITRATE DIHYDRATE
     Dosage: 3 G, TID
     Route: 048
     Dates: start: 20150224, end: 20150421
  27. BIOTIN [Concomitant]
     Active Substance: BIOTIN
     Indication: PROPHYLAXIS
     Dosage: 1.25 G, BID
     Route: 048
     Dates: start: 20150309, end: 20150429

REACTIONS (7)
  - Thrombotic microangiopathy [Not Recovered/Not Resolved]
  - Staphylococcal infection [Recovering/Resolving]
  - Staphylococcal infection [Unknown]
  - Bone marrow failure [Not Recovered/Not Resolved]
  - Renal impairment [Not Recovered/Not Resolved]
  - Staphylococcal infection [Recovering/Resolving]
  - Immunodeficiency [Fatal]

NARRATIVE: CASE EVENT DATE: 201103
